FAERS Safety Report 6437469-7 (Version None)
Quarter: 2009Q4

REPORT INFORMATION
  Report Type: 
  Country: None (occurrence: None)
  Receive Date: 20091112
  Receipt Date: 20091104
  Transmission Date: 20100525
  Serious: Yes (Hospitalization, Other)
  Sender: FDA-Public Use
  Company Number: PHHO2009US11999

PATIENT
  Sex: Female

DRUGS (5)
  1. RAD 666 RAD+TAB+PTR [Suspect]
     Indication: HEART TRANSPLANT
     Dosage: 0.75 UNK, UNK
     Route: 048
     Dates: start: 20080407
  2. RAD 666 RAD+TAB+PTR [Suspect]
     Dosage: NO TREATMENT
  3. RAD 666 RAD+TAB+PTR [Suspect]
     Dosage: UNK
     Route: 048
     Dates: end: 20091019
  4. OMNIPAQUE 140 [Suspect]
     Dosage: UNK
  5. CELLCEPT [Concomitant]
     Dosage: 1500 MG, BID
     Dates: start: 20091002, end: 20091020

REACTIONS (16)
  - ATELECTASIS [None]
  - CARDIOMEGALY [None]
  - CHEST PAIN [None]
  - DYSPNOEA [None]
  - FATIGUE [None]
  - FLUSHING [None]
  - FORCED EXPIRATORY VOLUME DECREASED [None]
  - HERPES ZOSTER [None]
  - HYPOXIA [None]
  - LUNG DISORDER [None]
  - NAUSEA [None]
  - OROPHARYNGEAL PAIN [None]
  - PLEURAL EFFUSION [None]
  - PLEURAL FIBROSIS [None]
  - PULMONARY OEDEMA [None]
  - RASH [None]
